FAERS Safety Report 17588999 (Version 1)
Quarter: 2020Q1

REPORT INFORMATION
  Report Type: Spontaneous
  Country: MX (occurrence: MX)
  Receive Date: 20200327
  Receipt Date: 20200327
  Transmission Date: 20200409
  Serious: Yes (Hospitalization, Disabling, Other)
  Sender: FDA-Public Use
  Company Number: MX-ELI_LILLY_AND_COMPANY-MX201810004482

PATIENT
  Age: 76 Year
  Sex: Female

DRUGS (1)
  1. FORTEO [Suspect]
     Active Substance: TERIPARATIDE
     Indication: OSTEOPOROSIS
     Dosage: 20 UG, MONTHLY (1/M)
     Route: 058
     Dates: end: 201908

REACTIONS (6)
  - Inappropriate schedule of product administration [Unknown]
  - Gait inability [Unknown]
  - Femur fracture [Recovering/Resolving]
  - Localised infection [Recovering/Resolving]
  - Cardiac disorder [Recovered/Resolved]
  - Lung disorder [Recovered/Resolved]

NARRATIVE: CASE EVENT DATE: 201908
